FAERS Safety Report 5398266-7 (Version None)
Quarter: 2007Q3

REPORT INFORMATION
  Report Type: 
  Country: None (occurrence: None)
  Receive Date: 20070724
  Receipt Date: 20070712
  Transmission Date: 20080115
  Serious: Yes (Death, Hospitalization)
  Sender: FDA-Public Use
  Company Number: B0479828A

PATIENT
  Age: 20 Year
  Sex: Female

DRUGS (15)
  1. SALMETEROL XINAFOATE [Suspect]
     Indication: ASTHMA
     Dosage: INHALED
  2. ALBUTEROL SPIROS [Concomitant]
  3. IPRATROP.BR+SALBUTAM.SO4 [Concomitant]
  4. FLUTICASONE PROPIONATE [Concomitant]
  5. PREDNISONE [Concomitant]
  6. AZITHROMYCIN [Concomitant]
  7. CLARITHYROMYCIN [Concomitant]
  8. THEOPHYLLINE [Concomitant]
  9. MONTELUKAST SODIUM [Concomitant]
  10. DEXAMETHASONE 0.5MG TAB [Concomitant]
  11. TERBUTALINE SULFATE [Concomitant]
  12. MAGNESIUM SULFATE [Concomitant]
  13. ESOMEPRAZOLE MAGNESIUM [Concomitant]
  14. CEFTRIAXONE [Concomitant]
  15. LEVOFLOXACIN [Concomitant]

REACTIONS (12)
  - ASTHMA [None]
  - BRONCHIAL SECRETION RETENTION [None]
  - CARDIAC ARREST [None]
  - CHILLS [None]
  - CONDITION AGGRAVATED [None]
  - CYANOSIS [None]
  - EMPHYSEMA [None]
  - EOSINOPHILIC PNEUMONIA [None]
  - PERIPHERAL COLDNESS [None]
  - PNEUMONIA [None]
  - RESPIRATORY ARREST [None]
  - UNRESPONSIVE TO STIMULI [None]
